FAERS Safety Report 5773223-7 (Version None)
Quarter: 2008Q2

REPORT INFORMATION
  Report Type: 
  Country: None (occurrence: None)
  Receive Date: 20080616
  Receipt Date: 20080605
  Transmission Date: 20081010
  Serious: Yes (Other)
  Sender: FDA-Public Use
  Company Number: JP-JNJFOC-20080602204

PATIENT
  Sex: Male

DRUGS (1)
  1. FENTANYL TRANSDERMAL SYSTEM [Suspect]
     Indication: PAIN
     Route: 062

REACTIONS (5)
  - HEADACHE [None]
  - NARCOTIC INTOXICATION [None]
  - PSYCHIATRIC SYMPTOM [None]
  - WITHDRAWAL SYNDROME [None]
  - WRONG TECHNIQUE IN DRUG USAGE PROCESS [None]
